FAERS Safety Report 17780076 (Version 5)
Quarter: 2021Q1

REPORT INFORMATION
  Report Type: Report from Study
  Country: None (occurrence: US)
  Receive Date: 20200514
  Receipt Date: 20210301
  Transmission Date: 20210419
  Serious: Yes (Hospitalization, Other)
  Sender: FDA-Public Use
  Company Number: US-ABBVIE-20K-163-3340654-00

PATIENT
  Age: 65 Year
  Sex: Male
  Weight: 95.34 kg

DRUGS (6)
  1. HUMIRA [Suspect]
     Active Substance: ADALIMUMAB
     Indication: COLITIS ULCERATIVE
     Route: 058
     Dates: start: 2013
  2. HUMIRA [Suspect]
     Active Substance: ADALIMUMAB
     Dosage: DOSAGE INCREASED
     Route: 058
  3. PREDNISONE. [Concomitant]
     Active Substance: PREDNISONE
     Indication: PRODUCT USED FOR UNKNOWN INDICATION
  4. HUMIRA [Suspect]
     Active Substance: ADALIMUMAB
     Route: 058
     Dates: end: 202007
  5. HUMIRA [Suspect]
     Active Substance: ADALIMUMAB
     Route: 058
     Dates: start: 202007
  6. HUMIRA [Suspect]
     Active Substance: ADALIMUMAB
     Indication: COLITIS ULCERATIVE
     Route: 058
     Dates: start: 2010

REACTIONS (18)
  - Fibrin D dimer increased [Recovering/Resolving]
  - Wound [Recovering/Resolving]
  - Thrombosis [Unknown]
  - Pulmonary embolism [Unknown]
  - Loss of consciousness [Unknown]
  - Coronary artery stenosis [Recovering/Resolving]
  - Joint range of motion decreased [Recovered/Resolved]
  - Infection [Unknown]
  - Wound haemorrhage [Recovering/Resolving]
  - Knee arthroplasty [Unknown]
  - Fall [Recovered/Resolved]
  - Vitamin D decreased [Unknown]
  - Cartilage injury [Recovering/Resolving]
  - Deep vein thrombosis [Recovering/Resolving]
  - Vitamin B12 decreased [Unknown]
  - Dyspnoea [Recovering/Resolving]
  - Blood iron decreased [Unknown]
  - Colitis ulcerative [Unknown]

NARRATIVE: CASE EVENT DATE: 201910
